FAERS Safety Report 6228094-1 (Version None)
Quarter: 2009Q2

REPORT INFORMATION
  Report Type: 
  Country: None (occurrence: None)
  Receive Date: 20090610
  Receipt Date: 20090610
  Transmission Date: 20091009
  Serious: Yes (Hospitalization)
  Sender: FDA-Public Use
  Company Number: None

PATIENT
  Age: 67 Year
  Sex: Male
  Weight: 111.1 kg

DRUGS (1)
  1. TERAZOSIN HCL [Suspect]
     Indication: BENIGN PROSTATIC HYPERPLASIA
     Dosage: 2MG HS PO
     Route: 048
     Dates: start: 20090224, end: 20090227

REACTIONS (2)
  - BLOOD PRESSURE DIASTOLIC INCREASED [None]
  - SYNCOPE [None]
